FAERS Safety Report 10102727 (Version 2)
Quarter: 2014Q2

REPORT INFORMATION
  Report Type: Report from Study
  Country: US (occurrence: US)
  Receive Date: 20140424
  Receipt Date: 20140509
  Transmission Date: 20141212
  Serious: Yes (Death)
  Sender: FDA-Public Use
  Company Number: PHEH2014US008070

PATIENT
  Age: 64 Year
  Sex: Male
  Weight: 133.8 kg

DRUGS (1)
  1. DIOVAN [Suspect]
     Dosage: 160 MG, UNK
     Route: 048

REACTIONS (2)
  - Respiratory failure [Fatal]
  - Dyspnoea [Fatal]
